FAERS Safety Report 14836592 (Version 1)
Quarter: 2018Q2

REPORT INFORMATION
  Report Type: Spontaneous
  Country: US (occurrence: US)
  Receive Date: 20180502
  Receipt Date: 20180502
  Transmission Date: 20180711
  Serious: No
  Sender: FDA-Public Use
  Company Number: US-BIOGEN-2018BI00567426

PATIENT
  Age: 31 Year
  Sex: Female

DRUGS (1)
  1. TYSABRI [Suspect]
     Active Substance: NATALIZUMAB
     Indication: MULTIPLE SCLEROSIS
     Route: 042
     Dates: start: 20180329

REACTIONS (9)
  - Diplopia [Not Recovered/Not Resolved]
  - Nausea [Not Recovered/Not Resolved]
  - Chills [Recovered/Resolved]
  - Pain [Recovered/Resolved]
  - Malaise [Not Recovered/Not Resolved]
  - Headache [Not Recovered/Not Resolved]
  - Chest discomfort [Recovered/Resolved]
  - Fatigue [Not Recovered/Not Resolved]
  - Feeling hot [Recovered/Resolved]

NARRATIVE: CASE EVENT DATE: 20180329
